FAERS Safety Report 17974561 (Version 1)
Quarter: 2020Q3

REPORT INFORMATION
  Report Type: Report from Study
  Country: BR (occurrence: BR)
  Receive Date: 20200702
  Receipt Date: 20200702
  Transmission Date: 20201103
  Serious: Yes (Other)
  Sender: FDA-Public Use
  Company Number: BR-JNJFOC-20200632198

PATIENT
  Age: 49 Year
  Sex: Female

DRUGS (6)
  1. FUROSEMIDE. [Concomitant]
     Active Substance: FUROSEMIDE
  2. ATENOLOL. [Concomitant]
     Active Substance: ATENOLOL
  3. SIMVASTATIN. [Concomitant]
     Active Substance: SIMVASTATIN
  4. METHOTREXATE. [Concomitant]
     Active Substance: METHOTREXATE
  5. SIMPONI [Suspect]
     Active Substance: GOLIMUMAB
     Indication: RHEUMATOID ARTHRITIS
     Route: 058
     Dates: start: 20160721
  6. METFORMIN [Concomitant]
     Active Substance: METFORMIN HYDROCHLORIDE

REACTIONS (2)
  - Erysipelas [Unknown]
  - Arthralgia [Unknown]

NARRATIVE: CASE EVENT DATE: 20200607
